FAERS Safety Report 26174550 (Version 2)
Quarter: 2025Q4

REPORT INFORMATION
  Report Type: Report from Study
  Country: US (occurrence: US)
  Receive Date: 20251218
  Receipt Date: 20251218
  Transmission Date: 20260118
  Serious: No
  Sender: LEO PHARM
  Company Number: US-LEO Pharma-384924

PATIENT
  Age: 54 Year
  Sex: Male

DRUGS (2)
  1. ANZUPGO [Suspect]
     Active Substance: DELGOCITINIB
     Indication: Dermatitis atopic
     Dosage: APPLY A THIN LAYER
     Route: 003
     Dates: start: 20251204, end: 20251209
  2. ANZUPGO [Suspect]
     Active Substance: DELGOCITINIB
     Indication: Dermatitis atopic
     Dosage: APPLY A THIN LAYER
     Route: 003
     Dates: start: 20251204, end: 20251209

REACTIONS (4)
  - Product use in unapproved indication [Unknown]
  - Dry skin [Unknown]
  - Skin fissures [Unknown]
  - Pain of skin [Unknown]

NARRATIVE: CASE EVENT DATE: 20251204
